FAERS Safety Report 21474438 (Version 4)
Quarter: 2022Q4

REPORT INFORMATION
  Report Type: Report from Study
  Country: ES (occurrence: ES)
  Receive Date: 20221018
  Receipt Date: 20221110
  Transmission Date: 20230113
  Serious: Yes (Death, Hospitalization)
  Sender: FDA-Public Use
  Company Number: ES-OTSUKA-2022_040147

PATIENT
  Age: 81 Year
  Sex: Female

DRUGS (6)
  1. CEDAZURIDINE\DECITABINE [Suspect]
     Active Substance: CEDAZURIDINE\DECITABINE
     Indication: Myelodysplastic syndrome
     Dosage: 135 MG (100/35 MG) (DAYS 1-3) STANDARD DOSE
     Route: 048
     Dates: start: 20220725
  2. AMLODIPINE [Concomitant]
     Active Substance: AMLODIPINE BESYLATE
     Indication: Hypertension
     Dosage: UNK
     Route: 002
     Dates: start: 20200521
  3. ASPIRIN [Concomitant]
     Active Substance: ASPIRIN
     Indication: Antiplatelet therapy
     Dosage: UNK
     Route: 002
     Dates: start: 20120101
  4. OMEPRAZOLE [Concomitant]
     Active Substance: OMEPRAZOLE
     Indication: Prophylaxis
     Dosage: UNK
     Route: 002
     Dates: start: 20220627
  5. EXJADE [Concomitant]
     Active Substance: DEFERASIROX
     Indication: Anaemia
     Dosage: UNK
     Route: 002
     Dates: start: 20220120
  6. CALCIUM CARBONATE\CHOLECALCIFEROL [Concomitant]
     Active Substance: CALCIUM CARBONATE\CHOLECALCIFEROL
     Indication: Osteoporosis
     Dosage: UNK
     Route: 002
     Dates: start: 20220203

REACTIONS (1)
  - Pseudomonas infection [Fatal]

NARRATIVE: CASE EVENT DATE: 20220807
